FAERS Safety Report 8165291-2 (Version None)
Quarter: 2012Q1

REPORT INFORMATION
  Report Type: 
  Country: None (occurrence: None)
  Receive Date: 20120227
  Receipt Date: 20120215
  Transmission Date: 20120608
  Serious: No
  Sender: FDA-Public Use
  Company Number: FI-JNJFOC-20120208272

PATIENT
  Age: 90 Year
  Sex: Female

DRUGS (3)
  1. DURAGESIC-100 [Suspect]
     Dosage: 12UG/HR+HALF OF 12UG/HR
     Route: 062
  2. OXYCONTIN [Concomitant]
     Indication: PAIN MANAGEMENT
     Route: 065
  3. DURAGESIC-100 [Suspect]
     Indication: PAIN MANAGEMENT
     Route: 062

REACTIONS (1)
  - DRUG PRESCRIBING ERROR [None]
